FAERS Safety Report 13968939 (Version 2)
Quarter: 2017Q3

REPORT INFORMATION
  Report Type: Spontaneous
  Country: US (occurrence: US)
  Receive Date: 20170914
  Receipt Date: 20170918
  Transmission Date: 20171128
  Serious: No
  Sender: FDA-Public Use
  Company Number: US-009507513-1709USA007373

PATIENT

DRUGS (1)
  1. JANUVIA [Suspect]
     Active Substance: SITAGLIPTIN PHOSPHATE
     Route: 048

REACTIONS (5)
  - Tongue disorder [Unknown]
  - Drug intolerance [Unknown]
  - Muscle spasms [Unknown]
  - Vitamin B12 decreased [Unknown]
  - Blood magnesium decreased [Unknown]
